FAERS Safety Report 14012745 (Version 1)
Quarter: 2017Q3

REPORT INFORMATION
  Report Type: Not Available
  Country: None (occurrence: US)
  Receive Date: 20170926
  Receipt Date: 20170926
  Transmission Date: 20171128
  Serious: No
  Sender: FDA-Public Use
  Company Number: US-AKORN-59377

PATIENT
  Sex: Male

DRUGS (1)
  1. KETOTIFEN FUMARATE- KETOTIFEN FUMARATE SOLUTION/ DROPS [Suspect]
     Active Substance: KETOTIFEN FUMARATE

REACTIONS (3)
  - Foreign body sensation in eyes [Recovered/Resolved]
  - Product storage error [None]
  - Eye irritation [Recovered/Resolved]
